FAERS Safety Report 8780584 (Version 2)
Quarter: 2012Q4

REPORT INFORMATION
  Report Type: 
  Country: US (occurrence: US)
  Receive Date: 20120913
  Receipt Date: 20121106
  Transmission Date: 20130627
  Serious: No
  Sender: FDA-Public Use
  Company Number: US-PFIZER INC-2012224833

PATIENT
  Age: 75 Year
  Sex: Male

DRUGS (2)
  1. ALPRAZOLAM [Suspect]
     Dosage: 0.5 mg, 1x/day
  2. ALPRAZOLAM [Suspect]
     Dosage: 1 mg, 1x/day

REACTIONS (3)
  - Product colour issue [Unknown]
  - Pharyngeal disorder [Unknown]
  - Thirst [Unknown]
